FAERS Safety Report 10169345 (Version 1)
Quarter: 2014Q2

REPORT INFORMATION
  Report Type: Spontaneous
  Country: US (occurrence: US)
  Receive Date: 20140513
  Receipt Date: 20140513
  Transmission Date: 20141212
  Serious: No
  Sender: FDA-Public Use
  Company Number: US-PFIZER INC-2014129077

PATIENT
  Age: 64 Year
  Sex: Female

DRUGS (1)
  1. SUTENT [Suspect]
     Indication: SOFT TISSUE SARCOMA
     Dosage: 50 MG DAILY (4 WEEKS ON 2 WEEKS OFF)
     Route: 048
     Dates: start: 20140218

REACTIONS (2)
  - Off label use [Unknown]
  - Dizziness [Unknown]
